FAERS Safety Report 6042940-6 (Version None)
Quarter: 2009Q1

REPORT INFORMATION
  Report Type: 
  Country: None (occurrence: None)
  Receive Date: 20090119
  Receipt Date: 20090113
  Transmission Date: 20090719
  Serious: Yes (Life-Threatening, Hospitalization)
  Sender: FDA-Public Use
  Company Number: D0058842A

PATIENT
  Age: 83 Year
  Sex: Female
  Weight: 68 kg

DRUGS (1)
  1. ADARTREL [Suspect]
     Indication: RESTLESS LEGS SYNDROME
     Dosage: .5MG PER DAY
     Route: 048
     Dates: start: 20080506, end: 20080607

REACTIONS (9)
  - ATRIAL FIBRILLATION [None]
  - BRADYARRHYTHMIA [None]
  - CAROTID ARTERY STENOSIS [None]
  - DIARRHOEA [None]
  - DYSPNOEA [None]
  - HYPOTHYROIDISM [None]
  - PRESBYACUSIS [None]
  - RENAL FAILURE CHRONIC [None]
  - SPINAL COLUMN STENOSIS [None]
